FAERS Safety Report 5470188-2 (Version None)
Quarter: 2007Q3

REPORT INFORMATION
  Report Type: 
  Country: None (occurrence: None)
  Receive Date: 20070924
  Receipt Date: 20070910
  Transmission Date: 20080115
  Serious: Yes (Congenital Anomaly)
  Sender: FDA-Public Use
  Company Number: WAES 0708USA04038

PATIENT
  Age: 34 Year
  Sex: Female

DRUGS (7)
  1. CRIXIVAN [Suspect]
     Indication: HIV INFECTION
     Dosage: PO
     Route: 048
  2. SUSTIVA [Suspect]
     Indication: HIV INFECTION
     Dosage: PO
     Route: 048
  3. LAMIVUDINE [Suspect]
     Indication: HIV INFECTION
  4. ZIDOVUDINE [Suspect]
     Indication: HIV INFECTION
  5. NELFINAVIR MESYLATE UNK [Suspect]
     Indication: HIV INFECTION
  6. DIDANOSINE [Suspect]
     Indication: HIV INFECTION
  7. RITONAVIR UNK [Suspect]
     Indication: HIV INFECTION

REACTIONS (2)
  - DRUG EXPOSURE DURING PREGNANCY [None]
  - HYPOSPADIAS [None]
